FAERS Safety Report 24119668 (Version 3)
Quarter: 2024Q3

REPORT INFORMATION
  Report Type: Spontaneous
  Country: PT (occurrence: PT)
  Receive Date: 20240722
  Receipt Date: 20240830
  Transmission Date: 20241017
  Serious: Yes (Life-Threatening, Hospitalization, Other)
  Sender: MYLAN
  Company Number: PT-MYLANLABS-2024M1067159

PATIENT
  Age: 34 Year
  Sex: Male

DRUGS (1)
  1. SILDENAFIL [Suspect]
     Active Substance: SILDENAFIL
     Indication: Product used for unknown indication
     Dosage: 25 MILLIGRAM, TOTAL
     Route: 065

REACTIONS (3)
  - Aortic dissection [Unknown]
  - Syncope [Unknown]
  - Intentional product misuse [Unknown]
